FAERS Safety Report 12240821 (Version 1)
Quarter: 2016Q2

REPORT INFORMATION
  Report Type: Spontaneous
  Country: MX (occurrence: MX)
  Receive Date: 20160406
  Receipt Date: 20160406
  Transmission Date: 20160815
  Serious: Yes (Other)
  Sender: FDA-Public Use
  Company Number: MX-ROCHE-1736217

PATIENT
  Age: 20 Year
  Sex: Female
  Weight: 67 kg

DRUGS (28)
  1. EVASTEL [Concomitant]
     Route: 065
  2. LASTACAFT [Concomitant]
     Active Substance: ALCAFTADINE
     Route: 065
  3. COMBIVENT RESPIMAT [Concomitant]
     Active Substance: ALBUTEROL SULFATE\IPRATROPIUM BROMIDE
  4. OMNARIS [Concomitant]
     Active Substance: CICLESONIDE
     Route: 045
  5. DEFLAZACORT [Concomitant]
     Active Substance: DEFLAZACORT
     Route: 065
  6. LEVOFLOXACIN. [Concomitant]
     Active Substance: LEVOFLOXACIN
  7. DIMEGAN-D [Concomitant]
  8. HYPROMELLOSE [Concomitant]
     Active Substance: HYPROMELLOSES
  9. KETOTIFEN [Concomitant]
     Active Substance: KETOTIFEN
  10. SERETIDE [Concomitant]
     Active Substance: FLUTICASONE PROPIONATE\SALMETEROL XINAFOATE
     Dosage: DOSE: 50/500 OT
     Route: 065
  11. SALINE [Concomitant]
     Active Substance: SODIUM CHLORIDE
     Route: 065
  12. SERETIDE [Concomitant]
     Active Substance: FLUTICASONE PROPIONATE\SALMETEROL XINAFOATE
     Dosage: 50/500 UG
     Route: 065
  13. XOLAIR [Suspect]
     Active Substance: OMALIZUMAB
     Indication: ASTHMA
     Route: 065
     Dates: start: 20150203
  14. FORADIL [Suspect]
     Active Substance: FORMOTEROL FUMARATE
     Indication: PRODUCT USED FOR UNKNOWN INDICATION
     Route: 065
  15. EKLIRA GENUAIR [Concomitant]
     Active Substance: ACLIDINIUM BROMIDE
  16. SYSTANE ULTRA [Concomitant]
     Active Substance: POLYETHYLENE GLYCOL 400\PROPYLENE GLYCOL
  17. REFRESH TEARS [Concomitant]
     Active Substance: CARBOXYMETHYLCELLULOSE SODIUM
     Route: 065
  18. DYMISTA [Concomitant]
     Active Substance: AZELASTINE HYDROCHLORIDE\FLUTICASONE PROPIONATE
     Dosage: DYMISTA D
     Route: 045
  19. SPIRIVA [Concomitant]
     Active Substance: TIOTROPIUM BROMIDE MONOHYDRATE
     Route: 065
  20. MIFLONIDE [Suspect]
     Active Substance: BUDESONIDE
     Indication: PRODUCT USED FOR UNKNOWN INDICATION
     Route: 065
  21. NASACORT AQ [Concomitant]
     Active Substance: TRIAMCINOLONE ACETONIDE
  22. TRAMADOL. [Concomitant]
     Active Substance: TRAMADOL
  23. PREDNISONE. [Concomitant]
     Active Substance: PREDNISONE
     Route: 065
  24. MONTELUKAST [Concomitant]
     Active Substance: MONTELUKAST SODIUM
  25. OMEPRAZOLE. [Concomitant]
     Active Substance: OMEPRAZOLE
     Route: 065
  26. PATANOL [Concomitant]
     Active Substance: OLOPATADINE HYDROCHLORIDE
     Route: 065
  27. RINELON [Concomitant]
  28. EVASTEL [Concomitant]
     Route: 065

REACTIONS (5)
  - Rhinitis allergic [Unknown]
  - Bronchiectasis [Unknown]
  - Food allergy [Unknown]
  - Asthma [Unknown]
  - Dermatitis atopic [Unknown]
